FAERS Safety Report 13738661 (Version 1)
Quarter: 2017Q3

REPORT INFORMATION
  Report Type: Spontaneous
  Country: US (occurrence: US)
  Receive Date: 20170710
  Receipt Date: 20170710
  Transmission Date: 20171127
  Serious: Yes (Other)
  Sender: FDA-Public Use
  Company Number: US-SAOL THERAPEUTICS-2017SAO00357

PATIENT
  Age: 63 Year
  Sex: Male

DRUGS (4)
  1. COMPOUNDED BACLOFEN [Suspect]
     Active Substance: BACLOFEN
     Indication: PAIN
     Dosage: 10.2 ?G, \DAY
     Route: 037
  2. COMPOUNDED BACLOFEN [Suspect]
     Active Substance: BACLOFEN
     Indication: POST LAMINECTOMY SYNDROME
  3. COMPOUNDED BACLOFEN [Suspect]
     Active Substance: BACLOFEN
     Indication: BACK PAIN
  4. MORPHINE [Suspect]
     Active Substance: MORPHINE
     Dosage: 17 MG, \DAY
     Route: 037

REACTIONS (3)
  - Pain [Unknown]
  - Off label use [Unknown]
  - Device kink [Recovered/Resolved]

NARRATIVE: CASE EVENT DATE: 201701
